FAERS Safety Report 13217210 (Version 2)
Quarter: 2019Q1

REPORT INFORMATION
  Report Type: Other
  Country: US (occurrence: US)
  Receive Date: 20170210
  Receipt Date: 20190126
  Transmission Date: 20190417
  Serious: No
  Sender: FDA-Public Use
  Company Number: US-ACORDA-ACO_121059_2016

PATIENT
  Age: 66 Year
  Sex: Male

DRUGS (1)
  1. AMPYRA [Suspect]
     Active Substance: DALFAMPRIDINE
     Indication: MULTIPLE SCLEROSIS
     Dosage: 10 MG, BID (Q 12 HRS)
     Route: 048
     Dates: end: 201602

REACTIONS (6)
  - Ill-defined disorder [Unknown]
  - Gait disturbance [Unknown]
  - Balance disorder [Unknown]
  - Gait disturbance [Not Recovered/Not Resolved]
  - Therapy cessation [Unknown]
  - Therapy cessation [Unknown]

NARRATIVE: CASE EVENT DATE: 201602
